FAERS Safety Report 7441665-X (Version None)
Quarter: 2011Q2

REPORT INFORMATION
  Report Type: 
  Country: None (occurrence: None)
  Receive Date: 20110428
  Receipt Date: 20110413
  Transmission Date: 20111010
  Serious: Yes (Other)
  Sender: FDA-Public Use
  Company Number: NL-AMGEN-NLDSP2011017894

PATIENT
  Age: 31 Year
  Sex: Female
  Weight: 68 kg

DRUGS (6)
  1. ENBREL [Suspect]
     Indication: RHEUMATOID ARTHRITIS
     Dosage: 50 MG, WEEKLY
     Dates: start: 20101209
  2. MTX                                /00113802/ [Concomitant]
  3. INDOMETHACIN [Concomitant]
  4. OMEPRAZOLE [Concomitant]
  5. FRAGMIN [Suspect]
     Dosage: UNK
     Dates: end: 20110401
  6. FOLIC ACID [Concomitant]
     Dosage: UNK

REACTIONS (2)
  - FOOT OPERATION [None]
  - INJECTION SITE HAEMATOMA [None]
